FAERS Safety Report 7432547-8 (Version None)
Quarter: 2011Q2

REPORT INFORMATION
  Report Type: 
  Country: None (occurrence: None)
  Receive Date: 20110422
  Receipt Date: 20110411
  Transmission Date: 20111010
  Serious: Yes (Other)
  Sender: FDA-Public Use
  Company Number: CA-ELI_LILLY_AND_COMPANY-CA201104002829

PATIENT
  Sex: Male

DRUGS (7)
  1. ZYPREXA [Suspect]
     Dosage: 5 MG, EACH EVENING
     Dates: start: 20020923
  2. LITHIUM [Concomitant]
     Dosage: 300 MG, BID
  3. ZYPREXA [Suspect]
     Dosage: 7.5 MG, EACH EVENING
     Dates: start: 20020829
  4. CLONAZEPAM [Concomitant]
     Dosage: 0.5 DF, PRN
  5. ZYPREXA [Suspect]
     Indication: BIPOLAR I DISORDER
     Dosage: 10 MG, EACH EVENING
     Dates: start: 20020513
  6. ZYPREXA [Suspect]
     Dosage: 2.5 MG, UNK
  7. ZYPREXA [Suspect]
     Dosage: 1.25 DF, QD

REACTIONS (3)
  - MYOCARDIAL INFARCTION [None]
  - HYPERGLYCAEMIA [None]
  - BLOOD TRIGLYCERIDES INCREASED [None]
